FAERS Safety Report 5874807-8 (Version None)
Quarter: 2008Q3

REPORT INFORMATION
  Report Type: 
  Country: None (occurrence: None)
  Receive Date: 20080908
  Receipt Date: 20080908
  Transmission Date: 20090109
  Serious: Yes (Death)
  Sender: FDA-Public Use
  Company Number: None

PATIENT
  Sex: Female
  Weight: 84.8226 kg

DRUGS (2)
  1. FENTANYL-100 [Suspect]
     Dosage: ONE 100 MCG  Q 3 DAYS TD
     Route: 062
     Dates: start: 20071220
  2. FENTANYL-25 [Suspect]
     Dosage: ONE 25 MCG

REACTIONS (3)
  - ACCIDENT [None]
  - DRUG TOXICITY [None]
  - WRONG TECHNIQUE IN DRUG USAGE PROCESS [None]
